FAERS Safety Report 15301100 (Version 2)
Quarter: 2018Q4

REPORT INFORMATION
  Report Type: Not Available
  Country: US (occurrence: US)
  Receive Date: 20180821
  Receipt Date: 20181009
  Transmission Date: 20190204
  Serious: No
  Sender: FDA-Public Use
  Company Number: US-NEUROCRINE BIOSCIENCES INC.-2018NBI02405

PATIENT
  Age: 70 Year
  Sex: Male

DRUGS (19)
  1. INGREZZA [Suspect]
     Active Substance: VALBENAZINE
     Dates: start: 20180701
  2. UNICOMPLEX M [Concomitant]
  3. IBUPROFEN. [Concomitant]
     Active Substance: IBUPROFEN
  4. LORATADINE. [Concomitant]
     Active Substance: LORATADINE
  5. ABILIFY [Concomitant]
     Active Substance: ARIPIPRAZOLE
     Dates: start: 2014
  6. CALCIUM PHOSPHATE W D3 [Concomitant]
  7. CLOMIPRAMINE [Concomitant]
     Active Substance: CLOMIPRAMINE
  8. KLONOPIN [Concomitant]
     Active Substance: CLONAZEPAM
     Dates: start: 2014
  9. LUMIGAN [Concomitant]
     Active Substance: BIMATOPROST
  10. SEROQUEL [Concomitant]
     Active Substance: QUETIAPINE FUMARATE
     Dates: start: 2014
  11. OMEPRAZOLE. [Concomitant]
     Active Substance: OMEPRAZOLE
  12. QUETIAPINE. [Concomitant]
     Active Substance: QUETIAPINE
  13. EXELON PATCHES [Concomitant]
  14. XANAX [Concomitant]
     Active Substance: ALPRAZOLAM
  15. DOCUSATE [Concomitant]
     Active Substance: DOCUSATE
  16. TAMSULOSIN [Concomitant]
     Active Substance: TAMSULOSIN
  17. INGREZZA [Suspect]
     Active Substance: VALBENAZINE
     Indication: TARDIVE DYSKINESIA
     Dates: start: 20180220, end: 20180226
  18. INGREZZA [Suspect]
     Active Substance: VALBENAZINE
     Dates: start: 20180227, end: 20180628
  19. KLONOPIN [Concomitant]
     Active Substance: CLONAZEPAM
     Dates: start: 2014

REACTIONS (3)
  - Skin laceration [Unknown]
  - Fall [Recovered/Resolved]
  - Dry skin [Unknown]

NARRATIVE: CASE EVENT DATE: 2018
